FAERS Safety Report 8822759 (Version 1)
Quarter: 2012Q4

REPORT INFORMATION
  Report Type: 
  Country: US (occurrence: US)
  Receive Date: 20121003
  Receipt Date: 20121003
  Transmission Date: 20130627
  Serious: No
  Sender: FDA-Public Use
  Company Number: US-VERTEX PHARMACEUTICAL INC.-2012-021023

PATIENT
  Sex: Female

DRUGS (5)
  1. VX-950 [Suspect]
     Indication: HEPATITIS C
     Dosage: 750 mg, tid
     Route: 048
     Dates: start: 20120817
  2. PEGASYS [Concomitant]
     Indication: HEPATITIS C
     Dosage: 180 ?g, UNK
     Route: 058
     Dates: start: 20120817
  3. RIBASPHERE [Concomitant]
     Indication: HEPATITIS C
     Dosage: 800 mg, bid
     Route: 048
     Dates: start: 20120817
  4. PRISTIQ [Concomitant]
     Dosage: 1 DF, UNK
     Route: 048
  5. LISINOPRIL [Concomitant]
     Indication: HEPATITIS C
     Dosage: 1 DF, qd
     Route: 048

REACTIONS (6)
  - Chest pain [Unknown]
  - Anxiety [Unknown]
  - Insomnia [Unknown]
  - Decreased appetite [Unknown]
  - Chills [Unknown]
  - Fatigue [Unknown]
